FAERS Safety Report 19585695 (Version 1)
Quarter: 2021Q3

REPORT INFORMATION
  Report Type: Spontaneous
  Country: SE (occurrence: SE)
  Receive Date: 20210720
  Receipt Date: 20210720
  Transmission Date: 20211014
  Serious: Yes (Hospitalization)
  Sender: FDA-Public Use
  Company Number: SE-OTSUKA-2019_039438

PATIENT
  Age: 29 Year
  Sex: Female

DRUGS (4)
  1. IMOVANE [Suspect]
     Active Substance: ZOPICLONE
     Indication: PRODUCT USED FOR UNKNOWN INDICATION
     Dosage: 7?20X7.5 MG, SINGLE
     Route: 048
     Dates: start: 20180330, end: 20180330
  2. LERGIGAN (PROMETHAZINE HYDROCHLORIDE) [Suspect]
     Active Substance: PROMETHAZINE HYDROCHLORIDE
     Indication: PRODUCT USED FOR UNKNOWN INDICATION
     Dosage: 450 MG, SINGLE
     Route: 048
     Dates: start: 20180330, end: 20180330
  3. ABILIFY [Suspect]
     Active Substance: ARIPIPRAZOLE
     Indication: PRODUCT USED FOR UNKNOWN INDICATION
     Dosage: 35 MG, SINGLE
     Route: 048
     Dates: start: 20180330, end: 20180330
  4. PROPAVAN [Suspect]
     Active Substance: PROPIOMAZINE
     Indication: PRODUCT USED FOR UNKNOWN INDICATION
     Dosage: 100 MG, SINGLE
     Route: 048
     Dates: start: 20180330, end: 20180330

REACTIONS (4)
  - Dyspnoea [Unknown]
  - Intentional overdose [Unknown]
  - Fatigue [Unknown]
  - Intentional self-injury [Unknown]

NARRATIVE: CASE EVENT DATE: 20180330
